FAERS Safety Report 5431201-1 (Version None)
Quarter: 2007Q3

REPORT INFORMATION
  Report Type: 
  Country: None (occurrence: None)
  Receive Date: 20070830
  Receipt Date: 20070328
  Transmission Date: 20080115
  Serious: Yes (Disabling)
  Sender: FDA-Public Use
  Company Number: A0645029A

PATIENT
  Age: 41 Year
  Sex: Male

DRUGS (2)
  1. WELLBUTRIN [Suspect]
     Indication: DEPRESSION
     Dosage: 300MG PER DAY
     Route: 048
     Dates: start: 20050301, end: 20070307
  2. NO CONCURRENT MEDICATION [Concomitant]

REACTIONS (1)
  - PAINFUL ERECTION [None]
